FAERS Safety Report 10173674 (Version 2)
Quarter: 2014Q2

REPORT INFORMATION
  Report Type: Spontaneous
  Country: JP (occurrence: JP)
  Receive Date: 20140515
  Receipt Date: 20140530
  Transmission Date: 20141212
  Serious: Yes (Other)
  Sender: FDA-Public Use
  Company Number: JP-JNJFOC-20140507899

PATIENT
  Age: 65 Year
  Sex: Male

DRUGS (1)
  1. REMICADE [Suspect]
     Indication: CROHN^S DISEASE
     Route: 042

REACTIONS (5)
  - Laryngeal oedema [Recovering/Resolving]
  - Laryngeal ulceration [Recovering/Resolving]
  - Throat lesion [Recovering/Resolving]
  - Nasopharyngitis [Recovering/Resolving]
  - Aphthous stomatitis [Recovering/Resolving]
